FAERS Safety Report 8273666-6 (Version None)
Quarter: 2012Q2

REPORT INFORMATION
  Report Type: 
  Country: None (occurrence: None)
  Receive Date: 20120411
  Receipt Date: 20120228
  Transmission Date: 20120825
  Serious: No
  Sender: FDA-Public Use
  Company Number: US-TEVA-324905USA

PATIENT
  Sex: Female
  Weight: 83.99 kg

DRUGS (6)
  1. CLONAZEPAM [Concomitant]
     Indication: EPILEPSY
     Route: 048
  2. NUVIGIL [Suspect]
     Indication: SLEEP APNOEA SYNDROME
     Dosage: 250 MILLIGRAM;
     Route: 048
     Dates: start: 20110101
  3. PERCOCET [Concomitant]
     Indication: PAIN
     Dosage: 10-500 MG - PRN
     Route: 048
  4. LAMOTRGINE [Concomitant]
     Indication: EPILEPSY
     Dosage: 200 MILLIGRAM;
     Route: 048
  5. DULOXETINE HYDROCHLORIDE [Concomitant]
     Indication: DEPRESSION
     Dosage: 60 MILLIGRAM;
     Route: 048
  6. ROPINIROLE HYDROCHLORIDE [Concomitant]
     Indication: RESTLESS LEGS SYNDROME
     Dosage: 2 MILLIGRAM;
     Route: 048

REACTIONS (2)
  - STOMATITIS [None]
  - ALOPECIA [None]
